FAERS Safety Report 24760041 (Version 1)
Quarter: 2024Q4

REPORT INFORMATION
  Report Type: Other
  Country: US (occurrence: US)
  Receive Date: 20241220
  Receipt Date: 20241220
  Transmission Date: 20250114
  Serious: Yes (Life-Threatening)
  Sender: B BRAUN
  Company Number: US-B.Braun Medical Inc.-2167494

PATIENT
  Age: 50 Year
  Sex: Male

DRUGS (7)
  1. METRONIDAZOLE [Suspect]
     Active Substance: METRONIDAZOLE
     Indication: Septic shock
  2. METRONIDAZOLE [Suspect]
     Active Substance: METRONIDAZOLE
     Indication: Neutropenic sepsis
  3. QUETIAPINE [Suspect]
     Active Substance: QUETIAPINE
  4. VANCOMYCIN [Suspect]
     Active Substance: VANCOMYCIN
  5. AZTREONAM [Suspect]
     Active Substance: AZTREONAM
  6. AMIKACIN [Suspect]
     Active Substance: AMIKACIN
  7. OLANZAPINE [Suspect]
     Active Substance: OLANZAPINE

REACTIONS (1)
  - Acute graft versus host disease in skin [Recovered/Resolved]
